FAERS Safety Report 24185211 (Version 1)
Quarter: 2024Q3

REPORT INFORMATION
  Report Type: Spontaneous
  Country: US (occurrence: US)
  Receive Date: 20240807
  Receipt Date: 20240807
  Transmission Date: 20241017
  Serious: No
  Sender: GLENMARK
  Company Number: US-GLENMARK PHARMACEUTICALS-2024GMK090706

PATIENT

DRUGS (1)
  1. RYALTRIS [Suspect]
     Active Substance: MOMETASONE FUROATE MONOHYDRATE\OLOPATADINE HYDROCHLORIDE
     Indication: Seasonal allergy
     Dosage: UNK, BID, INSTILL 1-2 SPRAYS INTO EACH NOSTRIL EVERY 12 HOURS AS NEEDED
     Route: 045
     Dates: start: 20240409, end: 20240412

REACTIONS (2)
  - Product use issue [Unknown]
  - Device delivery system issue [Unknown]

NARRATIVE: CASE EVENT DATE: 20240412
